FAERS Safety Report 8611961-9 (Version None)
Quarter: 2012Q3

REPORT INFORMATION
  Report Type: 
  Country: None (occurrence: None)
  Receive Date: 20120822
  Receipt Date: 20120816
  Transmission Date: 20120928
  Serious: No
  Sender: FDA-Public Use
  Company Number: US-BAYER-2012-085158

PATIENT
  Age: 78 Year
  Sex: Male

DRUGS (2)
  1. ALEVE (CAPLET) [Suspect]
     Indication: PAIN
     Dosage: EVERYDAY
     Route: 048
  2. ASPIRIN [Suspect]
     Indication: PAIN
     Dosage: EVERYDAY
     Route: 048

REACTIONS (1)
  - NO ADVERSE EVENT [None]
